FAERS Safety Report 5343309-X (Version None)
Quarter: 2007Q2

REPORT INFORMATION
  Report Type: 
  Country: None (occurrence: None)
  Receive Date: 20070502
  Receipt Date: 20060801
  Transmission Date: 20071010
  Serious: Yes (Hospitalization)
  Sender: FDA-Public Use
  Company Number: PHEH2006US09785

PATIENT
  Sex: Female

DRUGS (2)
  1. LOTREL [Suspect]
     Dosage: ORAL
     Route: 048
  2. LISINOPRIL [Suspect]
     Dosage: SEE IMAGE
     Route: 048

REACTIONS (1)
  - PANCREATITIS [None]
